FAERS Safety Report 9228113 (Version 2)
Quarter: 2013Q2

REPORT INFORMATION
  Report Type: Report from Study
  Country: DE (occurrence: DE)
  Receive Date: 20130412
  Receipt Date: 20130507
  Transmission Date: 20140414
  Serious: Yes (Death, Other)
  Sender: FDA-Public Use
  Company Number: DE-ROCHE-1209257

PATIENT
  Sex: 0

DRUGS (5)
  1. ALTEPLASE [Suspect]
     Indication: ACUTE MYOCARDIAL INFARCTION
     Dosage: BOLUS OF 15 MG OF ALTEPLASE FOLLOWED BY A 90-MINUTE INFUSION IN WHICH THE INFUSION RATE WAS 0.75 MG/
     Route: 065
  2. ASPIRIN [Suspect]
     Indication: ACUTE MYOCARDIAL INFARCTION
     Route: 065
  3. ASPIRIN [Suspect]
     Route: 065
  4. HEPARIN [Suspect]
     Indication: ACUTE MYOCARDIAL INFARCTION
     Dosage: 60 U/KG BODY WEIGHT UP TO A DOSE OF 5000 U (NR)
     Route: 042
  5. TICLOPIDINE [Suspect]
     Indication: ACUTE MYOCARDIAL INFARCTION
     Route: 065

REACTIONS (4)
  - Death [Fatal]
  - Myocardial infarction [Unknown]
  - Myocardial infarction [Unknown]
  - Haemorrhage [Unknown]
